APPROVED DRUG PRODUCT: CARBOPLATIN
Active Ingredient: CARBOPLATIN
Strength: 1GM/100ML (10MG/ML)
Dosage Form/Route: INJECTABLE;INTRAVENOUS
Application: A091478 | Product #001
Applicant: PHARMOBEDIENT CONSULTING LLC
Approved: Nov 23, 2011 | RLD: No | RS: No | Type: DISCN